FAERS Safety Report 4614333-7 (Version None)
Quarter: 2005Q1

REPORT INFORMATION
  Report Type: 
  Country: None (occurrence: None)
  Receive Date: 20050315
  Receipt Date: 20050228
  Transmission Date: 20050727
  Serious: Yes (Disabling)
  Sender: FDA-Public Use
  Company Number: USA050290617

PATIENT
  Age: 62 Year
  Sex: Female

DRUGS (1)
  1. EVISTA [Suspect]
     Indication: OSTEOPENIA
     Dates: start: 20031001

REACTIONS (7)
  - BACK INJURY [None]
  - BEDRIDDEN [None]
  - DYSSTASIA [None]
  - INTERVERTEBRAL DISC PROTRUSION [None]
  - MAJOR DEPRESSION [None]
  - OSTEOPOROSIS [None]
  - THERAPY NON-RESPONDER [None]
